FAERS Safety Report 4905335-1 (Version None)
Quarter: 2006Q1

REPORT INFORMATION
  Report Type: 
  Country: None (occurrence: None)
  Receive Date: 20060207
  Receipt Date: 20060207
  Transmission Date: 20060701
  Serious: Yes (Other)
  Sender: FDA-Public Use
  Company Number: None

PATIENT
  Sex: Female
  Weight: 37.1 kg

DRUGS (1)
  1. CELEXA [Suspect]
     Indication: MUSCLE RIGIDITY
     Dosage: 1/2 TABLET   EACH AM   PO
     Route: 048
     Dates: start: 20060125, end: 20060129

REACTIONS (4)
  - DYSGEUSIA [None]
  - PHARYNGOLARYNGEAL PAIN [None]
  - TONGUE BLISTERING [None]
  - URTICARIA [None]
